FAERS Safety Report 24011507 (Version 1)
Quarter: 2024Q2

REPORT INFORMATION
  Report Type: Report from Study
  Country: BR (occurrence: BR)
  Receive Date: 20240625
  Receipt Date: 20240625
  Transmission Date: 20240716
  Serious: Yes (Other)
  Sender: FDA-Public Use
  Company Number: BR-TAKEDA-2024TUS061434

PATIENT
  Sex: Female

DRUGS (1)
  1. VEDOLIZUMAB [Suspect]
     Active Substance: VEDOLIZUMAB
     Indication: Colitis ulcerative
     Dosage: 300 MILLIGRAM
     Route: 042

REACTIONS (11)
  - Haematochezia [Unknown]
  - Asthenia [Unknown]
  - Oral disorder [Unknown]
  - Aphthous ulcer [Unknown]
  - Diarrhoea [Unknown]
  - Somnolence [Unknown]
  - Asthenia [Unknown]
  - Frequent bowel movements [Unknown]
  - Feeling abnormal [Unknown]
  - Decreased appetite [Unknown]
  - Flatulence [Unknown]
